FAERS Safety Report 4544978-4 (Version None)
Quarter: 2005Q1

REPORT INFORMATION
  Report Type: 
  Country: None (occurrence: None)
  Receive Date: 20050103
  Receipt Date: 20050103
  Transmission Date: 20050727
  Serious: Yes (Life-Threatening, Hospitalization)
  Sender: FDA-Public Use
  Company Number: None

PATIENT
  Sex: Male
  Weight: 68 kg

DRUGS (2)
  1. GLYBURIDE [Suspect]
     Indication: DIABETES MELLITUS
     Dosage: 2.5MG PO QD
     Route: 048
     Dates: start: 20030501, end: 20030801
  2. .. [Concomitant]

REACTIONS (6)
  - HYPOGLYCAEMIA [None]
  - MENTAL IMPAIRMENT [None]
  - MENTAL STATUS CHANGES [None]
  - MOVEMENT DISORDER [None]
  - SPEECH DISORDER [None]
  - VISION BLURRED [None]
